FAERS Safety Report 7641438-9 (Version None)
Quarter: 2011Q3

REPORT INFORMATION
  Report Type: 
  Country: None (occurrence: None)
  Receive Date: 20110728
  Receipt Date: 20110725
  Transmission Date: 20111222
  Serious: Yes (Death, Hospitalization)
  Sender: FDA-Public Use
  Company Number: US-AMGEN-QUU424991

PATIENT
  Age: 53 Year
  Sex: Male

DRUGS (5)
  1. IMMUNOGLOBULINS [Concomitant]
     Dosage: UNK UNK, UNK
     Dates: start: 20091104
  2. CORTICOSTEROID NOS [Concomitant]
     Dosage: UNK UNK, UNK
     Dates: start: 20070901
  3. CYCLOPHOSPHAMIDE [Concomitant]
     Dosage: UNK UNK, UNK
     Dates: start: 20091117
  4. RITUXIMAB [Concomitant]
  5. NPLATE [Suspect]
     Indication: IDIOPATHIC THROMBOCYTOPENIC PURPURA
     Dosage: UNK UNK, UNK
     Dates: start: 20091110

REACTIONS (2)
  - DEATH [None]
  - HOSPITALISATION [None]
